FAERS Safety Report 10426448 (Version 1)
Quarter: 2014Q3

REPORT INFORMATION
  Report Type: Spontaneous
  Country: US (occurrence: None)
  Receive Date: 20140902
  Receipt Date: 20140902
  Transmission Date: 20150326
  Serious: Yes (Life-Threatening, Hospitalization, Disabling)
  Sender: FDA-Public Use
  Company Number: None

PATIENT
  Age: 46 Year
  Sex: Female

DRUGS (1)
  1. REGRANEX [Suspect]
     Active Substance: BECAPLERMIN

REACTIONS (5)
  - Cellulitis [None]
  - Postoperative wound infection [None]
  - Sepsis [None]
  - Lymphoedema [None]
  - Blood glucose abnormal [None]

NARRATIVE: CASE EVENT DATE: 20140826
